FAERS Safety Report 10771354 (Version 2)
Quarter: 2015Q1

REPORT INFORMATION
  Report Type: Spontaneous
  Country: US (occurrence: AU)
  Receive Date: 20150206
  Receipt Date: 20150324
  Transmission Date: 20150721
  Serious: Yes (Hospitalization)
  Sender: FDA-Public Use
  Company Number: AU-FRI-1000074104

PATIENT
  Sex: Female

DRUGS (2)
  1. FLUOXETINE HYDROCHLORIDE. [Suspect]
     Active Substance: FLUOXETINE HYDROCHLORIDE
  2. SAPHRIS [Suspect]
     Active Substance: ASENAPINE MALEATE
     Route: 060

REACTIONS (3)
  - Dizziness [Unknown]
  - Electrocardiogram QT prolonged [Unknown]
  - Blood potassium increased [Unknown]
